FAERS Safety Report 21928038 (Version 2)
Quarter: 2023Q1

REPORT INFORMATION
  Report Type: Spontaneous
  Country: DE (occurrence: DE)
  Receive Date: 20230130
  Receipt Date: 20230202
  Transmission Date: 20230418
  Serious: Yes (Other)
  Sender: FDA-Public Use
  Company Number: DE-ROCHE-3266786

PATIENT
  Sex: Male

DRUGS (9)
  1. OXALIPLATIN [Suspect]
     Active Substance: OXALIPLATIN
     Indication: Diffuse large B-cell lymphoma
     Dosage: UNK (FOURTH LINE WITH GEMCITABIN)
     Route: 065
     Dates: start: 20221118, end: 20221119
  2. LENALIDOMIDE [Suspect]
     Active Substance: LENALIDOMIDE
     Indication: Diffuse large B-cell lymphoma
     Dosage: UNK (SECOND LINE WITH TAFASITAMAB)
     Route: 065
     Dates: start: 20211201, end: 20220501
  3. PIPERACILLIN [Suspect]
     Active Substance: PIPERACILLIN
     Indication: Infection
     Dosage: UNK
     Route: 065
  4. GEMCITABINE [Suspect]
     Active Substance: GEMCITABINE
     Indication: Diffuse large B-cell lymphoma
     Dosage: UNK (FOURTH LINE WITH OXALIPLATIN)
     Route: 065
     Dates: start: 20221118, end: 20221119
  5. RITUXIMAB [Suspect]
     Active Substance: RITUXIMAB
     Indication: Diffuse large B-cell lymphoma
     Dosage: UNK (FIRST LINE WITH CHOP)
     Route: 042
     Dates: start: 20210101, end: 20210601
  6. RITUXIMAB [Suspect]
     Active Substance: RITUXIMAB
     Dosage: UNK (FOURTH LINE WITH GEMCITABIN AND OXALIPLATIN )
     Route: 042
     Dates: start: 20221118, end: 20221119
  7. POLATUZUMAB VEDOTIN [Suspect]
     Active Substance: POLATUZUMAB VEDOTIN
     Indication: Diffuse large B-cell lymphoma
     Dosage: UNK (THIRD LINE WITH BENDAMUSTINE)
     Route: 065
     Dates: start: 20220601, end: 20221001
  8. CYCLOPHOSPHAMIDE\DOXORUBICIN\PREDNISONE\VINCRISTINE [Suspect]
     Active Substance: CYCLOPHOSPHAMIDE\DOXORUBICIN\PREDNISONE\VINCRISTINE
     Indication: Diffuse large B-cell lymphoma
     Dosage: UNK (FIRST LINE WITH RITUXIMAB)
     Route: 065
     Dates: start: 20210101, end: 20210601
  9. TAZOBACTAM [Suspect]
     Active Substance: TAZOBACTAM
     Indication: Infection
     Dosage: UNK
     Route: 065

REACTIONS (3)
  - Lymphoma [Unknown]
  - C-reactive protein decreased [Unknown]
  - Infection [Unknown]
